FAERS Safety Report 5062228-X (Version None)
Quarter: 2006Q3

REPORT INFORMATION
  Report Type: 
  Country: None (occurrence: None)
  Receive Date: 20060726
  Receipt Date: 20051003
  Transmission Date: 20061208
  Serious: Yes (Other)
  Sender: FDA-Public Use
  Company Number: 200512825JP

PATIENT
  Age: 55 Year
  Sex: Female

DRUGS (6)
  1. LANTUS [Suspect]
     Indication: DIABETES MELLITUS
     Route: 058
     Dates: start: 20040120
  2. OPTIPEN (INSULIN PUMP) [Suspect]
  3. NOVORAPID [Concomitant]
     Indication: DIABETES MELLITUS
     Dosage: DOSE: 19-22 UNITS
     Route: 058
     Dates: start: 20030610
  4. ACECOL [Concomitant]
     Indication: HYPERTENSION
     Dosage: DOSE: 2 TABLETS
     Route: 048
     Dates: start: 20030305
  5. NORVASC [Concomitant]
     Indication: HYPERTENSION
     Dosage: DOSE: 2 TABLETS
     Route: 048
     Dates: start: 20031104
  6. PENFILL N [Concomitant]
     Indication: DIABETES MELLITUS

REACTIONS (2)
  - DIABETIC RETINOPATHY [None]
  - MACULAR OEDEMA [None]
